FAERS Safety Report 10313252 (Version 1)
Quarter: 2014Q3

REPORT INFORMATION
  Report Type: Spontaneous
  Country: PT (occurrence: None)
  Receive Date: 20140716
  Receipt Date: 20140716
  Transmission Date: 20150326
  Serious: Yes (Other)
  Sender: FDA-Public Use
  Company Number: PT-H14001-14-00185

PATIENT
  Age: 36 Year
  Sex: Female

DRUGS (5)
  1. SUFENTANIL (SUFENTANIL) (SUFENTANIL) [Concomitant]
  2. EPHEDRINE (EPHEDRINE) (EPHEDRINE) [Concomitant]
  3. CEFAZOLIN (CEFAZOLIN) [Suspect]
     Active Substance: CEFAZOLIN
     Indication: PRODUCT USED FOR UNKNOWN INDICATION
  4. OXYTOCIN (OXYTOCIN) (OXYTOCIN) [Concomitant]
  5. ROPIVACAINE (ROPIVACAINE) (ROPIVACAINE) [Concomitant]

REACTIONS (3)
  - Erythema [None]
  - Angioedema [None]
  - Hypotension [None]
